FAERS Safety Report 14167667 (Version 1)
Quarter: 2017Q4

REPORT INFORMATION
  Report Type: Report from Study
  Country: US (occurrence: AR)
  Receive Date: 20171107
  Receipt Date: 20171107
  Transmission Date: 20180321
  Serious: Yes (Life-Threatening, Hospitalization, Other)
  Sender: FDA-Public Use
  Company Number: US-SUNOVION-2017SUN004738

PATIENT
  Age: 70 Year
  Sex: Female

DRUGS (7)
  1. HYDROCHLOROTHIAZIDE W/LOSARTAN POTASSIUM [Concomitant]
     Active Substance: HYDROCHLOROTHIAZIDE\LOSARTAN POTASSIUM
     Dosage: 100 MG, UNK
  2. LEVOTHYROXINE. [Concomitant]
     Active Substance: LEVOTHYROXINE
  3. INDACATEROL [Suspect]
     Active Substance: INDACATEROL
     Indication: CHRONIC OBSTRUCTIVE PULMONARY DISEASE
     Dosage: 1 DF (150 MG), QD
     Route: 065
     Dates: start: 201511, end: 201512
  4. INDACATEROL [Suspect]
     Active Substance: INDACATEROL
     Dosage: 150 MG, QD
     Route: 065
     Dates: start: 201602
  5. SPIRIVA [Concomitant]
     Active Substance: TIOTROPIUM BROMIDE MONOHYDRATE
     Dosage: UNK
     Dates: start: 201511
  6. FREVIA [Suspect]
     Active Substance: BUDESONIDE\FORMOTEROL
     Indication: AGITATION
     Dosage: 1 DF ( 1 PUFF AFTER BREAKFAST AND BEFORE GOING TO BED), UNK
     Route: 065
     Dates: start: 201701
  7. PANTUS [Concomitant]

REACTIONS (7)
  - Loss of consciousness [Recovering/Resolving]
  - Aphonia [Recovering/Resolving]
  - Malaise [Recovering/Resolving]
  - Pulmonary thrombosis [Recovering/Resolving]
  - Memory impairment [Unknown]
  - Coma [Recovering/Resolving]
  - Agitation [Recovering/Resolving]

NARRATIVE: CASE EVENT DATE: 20151228
